FAERS Safety Report 5677561-8 (Version None)
Quarter: 2008Q1

REPORT INFORMATION
  Report Type: 
  Country: None (occurrence: None)
  Receive Date: 20080324
  Receipt Date: 20080312
  Transmission Date: 20080703
  Serious: Yes (Hospitalization)
  Sender: FDA-Public Use
  Company Number: US-AMGEN-US228105

PATIENT
  Sex: Female

DRUGS (10)
  1. PANITUMUMAB [Suspect]
     Indication: COLORECTAL CANCER
     Route: 042
     Dates: start: 20070525
  2. AMIODARONE HCL [Concomitant]
     Route: 065
  3. DILTIAZEM [Concomitant]
     Route: 065
  4. SYNTHROID [Concomitant]
     Route: 065
  5. MAGNESIUM OXIDE [Concomitant]
     Route: 065
  6. HYDROCHLOROTHIAZIDE [Concomitant]
     Route: 065
  7. DARVOCET-N 100 [Concomitant]
     Route: 065
  8. IRINOTECAN HCL [Concomitant]
     Route: 065
  9. LEUCOVORIN CALCIUM [Concomitant]
     Route: 065
  10. FLUOROURACIL [Concomitant]
     Route: 065

REACTIONS (6)
  - BACTERIA URINE IDENTIFIED [None]
  - FEBRILE NEUTROPENIA [None]
  - HAEMATOCRIT DECREASED [None]
  - PLATELET COUNT DECREASED [None]
  - RED BLOOD CELLS URINE POSITIVE [None]
  - WHITE BLOOD CELLS URINE POSITIVE [None]
